FAERS Safety Report 17958548 (Version 7)
Quarter: 2020Q3

REPORT INFORMATION
  Report Type: Report from Study
  Country: None (occurrence: DE)
  Receive Date: 20200630
  Receipt Date: 20200827
  Transmission Date: 20201103
  Serious: Yes (Hospitalization, Other)
  Sender: FDA-Public Use
  Company Number: DE-ABBVIE-20K-062-3460080-00

PATIENT
  Age: 71 Year
  Sex: Male

DRUGS (4)
  1. OMEPRAZOL [Concomitant]
     Active Substance: OMEPRAZOLE
     Indication: PRODUCT USED FOR UNKNOWN INDICATION
  2. CARBIDOPA W/ENTACAPONE/LEVODOPA [Concomitant]
     Active Substance: CARBIDOPA\ENTACAPONE\LEVODOPA
     Indication: PRODUCT USED FOR UNKNOWN INDICATION
     Dosage: 100 MG/25 MG, AS REQUIRED
  3. DUODOPA [Suspect]
     Active Substance: CARBIDOPA\LEVODOPA
  4. DUODOPA [Suspect]
     Active Substance: CARBIDOPA\LEVODOPA
     Indication: PARKINSON^S DISEASE
     Dosage: MD 7.0 ML; CRD 5.0 ML/H; CRN 2.8 ML/H;  ED 1.0 ML
     Route: 050
     Dates: start: 201310

REACTIONS (25)
  - Oesophageal ulcer [Unknown]
  - Weight decreased [Not Recovered/Not Resolved]
  - Purulence [Unknown]
  - Bezoar [Unknown]
  - Small intestinal ulcer perforation [Recovered/Resolved]
  - Embedded device [Unknown]
  - Mucosal disorder [Unknown]
  - Dysphagia [Unknown]
  - General physical health deterioration [Unknown]
  - Dehydration [Unknown]
  - Anal haemorrhage [Not Recovered/Not Resolved]
  - Mucosal dryness [Unknown]
  - Device physical property issue [Unknown]
  - Abdominal pain [Not Recovered/Not Resolved]
  - Gastric atony [Unknown]
  - Decreased appetite [Not Recovered/Not Resolved]
  - Embedded device [Recovered/Resolved]
  - Haemoglobin decreased [Unknown]
  - Tremor [Unknown]
  - Cardiac failure [Unknown]
  - Melaena [Unknown]
  - Medical device site movement impairment [Unknown]
  - Gastric ulcer perforation [Recovered/Resolved]
  - Unevaluable event [Unknown]
  - Cachexia [Unknown]

NARRATIVE: CASE EVENT DATE: 2020
